FAERS Safety Report 17805999 (Version 1)
Quarter: 2020Q2

REPORT INFORMATION
  Report Type: Spontaneous
  Country: GB (occurrence: GB)
  Receive Date: 20200520
  Receipt Date: 20200520
  Transmission Date: 20200714
  Serious: Yes (Other)
  Sender: FDA-Public Use
  Company Number: GB-AUROBINDO-AUR-APL-2020-025110

PATIENT

DRUGS (1)
  1. ABACAVIR. [Suspect]
     Active Substance: ABACAVIR
     Indication: ANTIRETROVIRAL THERAPY
     Dosage: UNK
     Route: 065

REACTIONS (3)
  - Glomerular filtration rate decreased [Recovered/Resolved]
  - Blood creatinine increased [Recovered/Resolved]
  - Renal impairment [Recovered/Resolved]
